FAERS Safety Report 17209133 (Version 1)
Quarter: 2019Q4

REPORT INFORMATION
  Report Type: Spontaneous
  Country: CA (occurrence: CA)
  Receive Date: 20191227
  Receipt Date: 20191227
  Transmission Date: 20200122
  Serious: Yes (Other)
  Sender: FDA-Public Use
  Company Number: CA-SA-2019SA355128

PATIENT
  Sex: Female

DRUGS (1)
  1. RANITIDINE. [Suspect]
     Active Substance: RANITIDINE
     Dosage: UNK UNK, UNK
     Route: 065

REACTIONS (4)
  - Pruritus [Unknown]
  - Swelling [Unknown]
  - Hypersensitivity [Unknown]
  - Swollen tongue [Unknown]
